FAERS Safety Report 15433495 (Version 1)
Quarter: 2018Q3

REPORT INFORMATION
  Report Type: Spontaneous
  Country: US (occurrence: US)
  Receive Date: 20180921
  Receipt Date: 20180921
  Transmission Date: 20181010
  Serious: Yes (Hospitalization)
  Sender: FDA-Public Use
  Company Number: None

PATIENT
  Age: 67 Year
  Sex: Male
  Weight: 74.39 kg

DRUGS (1)
  1. YESCARTA [Suspect]
     Active Substance: AXICABTAGENE CILOLEUCEL
     Indication: DIFFUSE LARGE B-CELL LYMPHOMA
     Dosage: 2X10^6 PER KG   MAX 2X10^8
     Route: 042
     Dates: start: 20180820

REACTIONS (7)
  - Aphasia [None]
  - Clostridium difficile infection [None]
  - Gait disturbance [None]
  - Dysarthria [None]
  - Neurotoxicity [None]
  - Pancytopenia [None]
  - Cytokine release syndrome [None]

NARRATIVE: CASE EVENT DATE: 20180821
